FAERS Safety Report 16408380 (Version 1)
Quarter: 2019Q2

REPORT INFORMATION
  Report Type: Spontaneous
  Country: CN (occurrence: CN)
  Receive Date: 20190610
  Receipt Date: 20190610
  Transmission Date: 20190711
  Serious: Yes (Other)
  Sender: FDA-Public Use
  Company Number: CN-ROCHE-2324323

PATIENT
  Age: 62 Year
  Sex: Female

DRUGS (2)
  1. BEVACIZUMAB. [Suspect]
     Active Substance: BEVACIZUMAB
     Indication: ADENOCARCINOMA OF COLON
     Route: 065
     Dates: start: 20160108, end: 20160521
  2. BEVACIZUMAB. [Suspect]
     Active Substance: BEVACIZUMAB
     Indication: METASTASES TO LIVER
     Route: 065

REACTIONS (8)
  - Haemorrhagic cyst [Unknown]
  - Spinal osteoarthritis [Unknown]
  - Positron emission tomogram abnormal [Unknown]
  - Tumour marker increased [Unknown]
  - Uterine leiomyoma [Unknown]
  - Breast mass [Unknown]
  - Benign lung neoplasm [Unknown]
  - Pericardial cyst [Unknown]
